FAERS Safety Report 15620242 (Version 1)
Quarter: 2018Q4

REPORT INFORMATION
  Report Type: Spontaneous
  Country: US (occurrence: US)
  Receive Date: 20181115
  Receipt Date: 20181115
  Transmission Date: 20190205
  Serious: No
  Sender: FDA-Public Use
  Company Number: US-ELI_LILLY_AND_COMPANY-US201811002725

PATIENT
  Age: 65 Year
  Sex: Male

DRUGS (4)
  1. CYRAMZA [Suspect]
     Active Substance: RAMUCIRUMAB
     Dosage: UNK U, UNKNOWN
     Route: 065
     Dates: start: 20180411
  2. TAXOTERE [Concomitant]
     Active Substance: DOCETAXEL
     Indication: PRODUCT USED FOR UNKNOWN INDICATION
     Dosage: UNK
     Dates: start: 20180223
  3. CYRAMZA [Suspect]
     Active Substance: RAMUCIRUMAB
     Indication: NON-SMALL CELL LUNG CANCER
     Dosage: UNK UNK, UNKNOWN
     Route: 065
     Dates: start: 20180223
  4. OPDIVO [Concomitant]
     Active Substance: NIVOLUMAB
     Indication: PRODUCT USED FOR UNKNOWN INDICATION

REACTIONS (14)
  - Cheilitis [Unknown]
  - Mouth ulceration [Unknown]
  - Oral pain [Unknown]
  - Decreased appetite [Unknown]
  - Lip pain [Unknown]
  - Blister [Unknown]
  - Fatigue [Unknown]
  - Malaise [Unknown]
  - Oropharyngeal pain [Unknown]
  - Penile ulceration [Unknown]
  - Lip blister [Unknown]
  - Lower respiratory tract congestion [Unknown]
  - Oral mucosal blistering [Unknown]
  - Stomatitis [Unknown]

NARRATIVE: CASE EVENT DATE: 20180307
